FAERS Safety Report 6442849-X (Version None)
Quarter: 2009Q4

REPORT INFORMATION
  Report Type: 
  Country: None (occurrence: None)
  Receive Date: 20091112
  Receipt Date: 20091103
  Transmission Date: 20100525
  Serious: Yes (Death, Hospitalization)
  Sender: FDA-Public Use
  Company Number: 2009-04510

PATIENT
  Age: 78 Year
  Sex: Female
  Weight: 57.8 kg

DRUGS (4)
  1. VELCADE [Suspect]
     Indication: ACUTE MYELOID LEUKAEMIA
     Dosage: 2 MG, INTRAVENOUS
     Route: 042
     Dates: start: 20090713, end: 20091009
  2. FLUDARABINE PHOSPHATE [Suspect]
     Indication: ACUTE MYELOID LEUKAEMIA
     Dosage: 45 MG,INTRAVENOUS
     Route: 042
     Dates: start: 20090709, end: 20090928
  3. CYTARABINE [Suspect]
     Indication: ACUTE MYELOID LEUKAEMIA
     Dosage: 1500 MG, INTRAVENOUS
     Route: 042
     Dates: start: 20090709, end: 20090928
  4. IDARUBICIN(IDARUBICIN) INJECTION [Suspect]
     Indication: ACUTE MYELOID LEUKAEMIA
     Dosage: 15 MG, INTRAVENOUS
     Route: 042
     Dates: start: 20090709, end: 20090927

REACTIONS (4)
  - HEPATIC ENCEPHALOPATHY [None]
  - LUNG INFECTION [None]
  - METABOLIC ENCEPHALOPATHY [None]
  - UNRESPONSIVE TO STIMULI [None]
